FAERS Safety Report 8847395 (Version 4)
Quarter: 2014Q1

REPORT INFORMATION
  Report Type: Report from Study
  Country: US (occurrence: US)
  Receive Date: 20121018
  Receipt Date: 20140314
  Transmission Date: 20141002
  Serious: Yes (Hospitalization)
  Sender: FDA-Public Use
  Company Number: US-ACTELION-A-NJ2012-72772

PATIENT
  Age: 5 Year
  Sex: Male

DRUGS (4)
  1. TRACLEER [Suspect]
     Indication: PULMONARY ARTERIAL HYPERTENSION
     Dosage: UNK
     Route: 048
  2. REMODULIN [Concomitant]
  3. SILDENAFIL [Concomitant]
  4. ADCIRCA [Concomitant]

REACTIONS (4)
  - Catheter site erythema [Unknown]
  - Catheter site inflammation [Unknown]
  - Skin infection [Recovered/Resolved]
  - Catheter site infection [Unknown]
